FAERS Safety Report 9878022 (Version 3)
Quarter: 2014Q2

REPORT INFORMATION
  Report Type: Spontaneous
  Country: AU (occurrence: AU)
  Receive Date: 20140206
  Receipt Date: 20140518
  Transmission Date: 20141212
  Serious: Yes (Other)
  Sender: FDA-Public Use
  Company Number: AU-009507513-1401AUS002899

PATIENT
  Age: 22 Year
  Sex: Female
  Weight: 99 kg

DRUGS (3)
  1. IMPLANON NXT [Suspect]
     Indication: CONTRACEPTION
     Dosage: UNK, DISTAL MEDIAL LEFT UPPER ARM SUBCUTANEOUS
     Route: 059
     Dates: start: 20130715, end: 20140102
  2. IMPLANON NXT [Suspect]
     Dosage: UNK
     Route: 059
     Dates: start: 20140102
  3. DUROMINE [Concomitant]
     Dosage: DAILY DOSE-30MG
     Route: 048
     Dates: start: 20140102

REACTIONS (3)
  - Surgery [Recovered/Resolved]
  - Device kink [Recovered/Resolved]
  - Device breakage [Recovered/Resolved]
